FAERS Safety Report 6384714-2 (Version None)
Quarter: 2009Q4

REPORT INFORMATION
  Report Type: 
  Country: None (occurrence: None)
  Receive Date: 20091001
  Receipt Date: 20090922
  Transmission Date: 20100525
  Serious: Yes (Hospitalization)
  Sender: FDA-Public Use
  Company Number: CH-NOVOPROD-292055

PATIENT
  Age: 86 Year
  Sex: Female

DRUGS (11)
  1. NOVONORM [Suspect]
     Indication: DRUG USE FOR UNKNOWN INDICATION
     Dosage: 6 MG, QD 3X 2MG
     Route: 048
     Dates: end: 20090825
  2. LANTUS [Suspect]
     Indication: DRUG USE FOR UNKNOWN INDICATION
     Dosage: 10 IU, QD
     Route: 058
     Dates: end: 20090825
  3. DILATREND [Suspect]
     Indication: DRUG USE FOR UNKNOWN INDICATION
     Dosage: 25 MG, QD (2 X 12,5 MG)
     Route: 048
  4. ACENOCOUMAROL [Concomitant]
  5. AMLOPIN                            /00972401/ [Concomitant]
  6. ATACAND [Concomitant]
  7. NITRODERM [Concomitant]
  8. TORSEMIDE [Concomitant]
  9. METOLAZONE [Concomitant]
  10. OMEPRAZOLE [Concomitant]
  11. DISTRANEURIN                       /00027501/ [Concomitant]
     Indication: TYPE 2 DIABETES MELLITUS

REACTIONS (2)
  - HYPOGLYCAEMIA [None]
  - SOMNOLENCE [None]
